FAERS Safety Report 8780474 (Version 1)
Quarter: 2012Q4

REPORT INFORMATION
  Report Type: Spontaneous
  Country: FR (occurrence: None)
  Receive Date: 20120828
  Receipt Date: 20120828
  Transmission Date: 20130627
  Serious: Yes (Hospitalization)
  Sender: FDA-Public Use
  Company Number: 1384914

PATIENT
  Age: 71 Year
  Sex: Male

DRUGS (2)
  1. OXALIPLATIN [Suspect]
     Indication: COLON CANCER METASTATIC
     Route: 041
     Dates: start: 20120516, end: 20120516
  2. VECTIBIX [Concomitant]

REACTIONS (5)
  - Syncope [None]
  - Nausea [None]
  - Vomiting [None]
  - Toxicity to various agents [None]
  - Infusion related reaction [None]
